FAERS Safety Report 7481849-8 (Version None)
Quarter: 2011Q2

REPORT INFORMATION
  Report Type: 
  Country: None (occurrence: None)
  Receive Date: 20110516
  Receipt Date: 20110420
  Transmission Date: 20111010
  Serious: Yes (Hospitalization)
  Sender: FDA-Public Use
  Company Number: US-JNJFOC-20110503316

PATIENT
  Sex: Female

DRUGS (11)
  1. NUCYNTA [Suspect]
     Indication: PAIN
     Dosage: 50MG/UP TO THREE TIMES A DAY AS NEEDED/ORAL
     Route: 048
     Dates: start: 20110412, end: 20110413
  2. SEROQUEL [Concomitant]
     Indication: SLEEP DISORDER THERAPY
     Dosage: ONCE A DAY AT BED TIME
     Route: 048
     Dates: start: 20100401
  3. EFFEXOR [Concomitant]
     Indication: DEPRESSION
     Dosage: ONCE DAILY
     Route: 048
  4. LIDODERM [Concomitant]
     Indication: ARTHRALGIA
     Route: 062
  5. PREVACID [Concomitant]
     Indication: GASTROOESOPHAGEAL REFLUX DISEASE
     Dosage: ONCE A DAY
     Route: 048
  6. SINGULAIR [Concomitant]
     Indication: ASTHMA
     Dosage: ONCE A DAY
     Route: 048
     Dates: start: 19981001
  7. VOLTAREN [Concomitant]
     Indication: PAIN
     Dosage: ONCE DAILY TO AFFECTED JOINTS AS RECOMMENDED
     Route: 061
  8. AVINZA [Concomitant]
     Indication: PAIN
     Dosage: ONCE DAILY
     Route: 048
     Dates: start: 20040301
  9. ZYRTEC [Concomitant]
     Indication: MULTIPLE ALLERGIES
     Dosage: ONCE A DAY
     Route: 048
     Dates: start: 20040601
  10. COUMADIN [Concomitant]
     Indication: ANTIPHOSPHOLIPID SYNDROME
     Dosage: 5MG/2 TABLELTS/2.5MG/ONCE DAILY/ORAL
     Route: 048
     Dates: start: 20020101
  11. MELPHALAN HYDROCHLORIDE [Concomitant]
     Indication: ARTHRITIS
     Route: 048
     Dates: start: 20100401

REACTIONS (3)
  - FALL [None]
  - HYPERSOMNIA [None]
  - EYE INJURY [None]
